FAERS Safety Report 14399794 (Version 2)
Quarter: 2018Q1

REPORT INFORMATION
  Report Type: Spontaneous
  Country: US (occurrence: US)
  Receive Date: 20180117
  Receipt Date: 20180303
  Transmission Date: 20180509
  Serious: Yes (Hospitalization)
  Sender: FDA-Public Use
  Company Number: US-JNJFOC-20171232630

PATIENT
  Age: 39 Year
  Sex: Female
  Weight: 70.31 kg

DRUGS (2)
  1. XARELTO [Suspect]
     Active Substance: RIVAROXABAN
     Indication: ATRIAL THROMBOSIS
     Dosage: 15 MG BID, THEN 20 MG DAILY
     Route: 048
     Dates: start: 20160316, end: 20160323
  2. XARELTO [Suspect]
     Active Substance: RIVAROXABAN
     Indication: ATRIAL THROMBOSIS
     Route: 048
     Dates: start: 2016, end: 201606

REACTIONS (3)
  - Product use in unapproved indication [Unknown]
  - Off label use [Unknown]
  - Menorrhagia [Recovering/Resolving]

NARRATIVE: CASE EVENT DATE: 201603
